FAERS Safety Report 9813919 (Version 1)
Quarter: 2014Q1

REPORT INFORMATION
  Report Type: Spontaneous
  Country: US (occurrence: US)
  Receive Date: 20140113
  Receipt Date: 20140113
  Transmission Date: 20141002
  Serious: Yes (Hospitalization)
  Sender: FDA-Public Use
  Company Number: US-SAVIENT-2013S1000133

PATIENT
  Age: 67 Year
  Sex: Male

DRUGS (1)
  1. KRYSTEXXA [Suspect]
     Indication: GOUT
     Route: 042

REACTIONS (1)
  - Deep vein thrombosis [Recovered/Resolved]
